FAERS Safety Report 9095325 (Version 2)
Quarter: 2013Q1

REPORT INFORMATION
  Report Type: Spontaneous
  Country: IT (occurrence: None)
  Receive Date: 20130122
  Receipt Date: 20130205
  Transmission Date: 20140127
  Serious: Yes (Hospitalization)
  Sender: FDA-Public Use
  Company Number: DSM-2013-00061

PATIENT
  Age: 66 Year
  Sex: Male

DRUGS (2)
  1. OLMETEC [Suspect]
     Indication: PRODUCT USED FOR UNKNOWN INDICATION
     Dosage: (160 MG, 1 IN 1 D)
     Route: 048
     Dates: start: 20121218, end: 20121218
  2. LORAZEPAM [Suspect]
     Indication: PRODUCT USED FOR UNKNOWN INDICATION
     Dosage: (10 MG, 1 IN 1 D)
     Route: 048
     Dates: start: 20121218, end: 20121218

REACTIONS (3)
  - Drug abuse [None]
  - Asthenia [None]
  - Intentional overdose [None]
